FAERS Safety Report 7006311-8 (Version None)
Quarter: 2010Q3

REPORT INFORMATION
  Report Type: 
  Country: None (occurrence: None)
  Receive Date: 20100921
  Receipt Date: 20100915
  Transmission Date: 20110219
  Serious: Yes (Other)
  Sender: FDA-Public Use
  Company Number: DE-AMGEN-KDL436908

PATIENT
  Sex: Female
  Weight: 73 kg

DRUGS (3)
  1. PROLIA [Suspect]
     Indication: OSTEOPOROSIS
     Route: 058
     Dates: start: 20100727
  2. MARCUMAR [Concomitant]
  3. CALCIUM CARBONATE/VITAMIN D3 [Concomitant]
     Route: 048
     Dates: start: 20070101

REACTIONS (4)
  - HYPERSENSITIVITY [None]
  - RASH [None]
  - SKIN REACTION [None]
  - VIRAL INFECTION [None]
